FAERS Safety Report 25988326 (Version 1)
Quarter: 2025Q4

REPORT INFORMATION
  Report Type: Spontaneous
  Country: IN (occurrence: IN)
  Receive Date: 20251103
  Receipt Date: 20251103
  Transmission Date: 20260117
  Serious: Yes (Death, Hospitalization, Other)
  Sender: IPCA
  Company Number: IN-IPCA LABORATORIES LIMITED-IPC-2025-IN-002923

PATIENT

DRUGS (1)
  1. METOCLOPRAMIDE [Suspect]
     Active Substance: METOCLOPRAMIDE
     Indication: Antiemetic supportive care
     Dosage: 10 MILLIGRAM, BID
     Route: 042

REACTIONS (5)
  - Neuroleptic malignant syndrome [Fatal]
  - Shock [Fatal]
  - Acute kidney injury [Fatal]
  - Multiple organ dysfunction syndrome [Fatal]
  - Condition aggravated [Fatal]
